FAERS Safety Report 15608769 (Version 1)
Quarter: 2018Q4

REPORT INFORMATION
  Report Type: Spontaneous
  Country: US (occurrence: US)
  Receive Date: 20181112
  Receipt Date: 20181112
  Transmission Date: 20190205
  Serious: No
  Sender: FDA-Public Use
  Company Number: US-SA-2018SA307943

PATIENT
  Sex: Female

DRUGS (3)
  1. AMARYL [Suspect]
     Active Substance: GLIMEPIRIDE
     Dosage: UNK, UNK
     Route: 065
  2. PIOGLITAZONA [PIOGLITAZONE HYDROCHLORIDE] [Concomitant]
     Dosage: 15 MG, QD
     Route: 065
  3. GLIPIZIDE. [Concomitant]
     Active Substance: GLIPIZIDE
     Dosage: 10 MG, BID
     Route: 065

REACTIONS (3)
  - Increased appetite [Unknown]
  - Vision blurred [Unknown]
  - Blood glucose increased [Unknown]
